FAERS Safety Report 11212626 (Version 2)
Quarter: 2015Q3

REPORT INFORMATION
  Report Type: Report from Study
  Country: US (occurrence: US)
  Receive Date: 20150623
  Receipt Date: 20150707
  Transmission Date: 20151125
  Serious: Yes (Hospitalization)
  Sender: FDA-Public Use
  Company Number: US-ACTELION-A-NJ2015-111997

PATIENT
  Age: 79 Year
  Sex: Female

DRUGS (2)
  1. MACITENTAN [Suspect]
     Active Substance: MACITENTAN
     Indication: PULMONARY HYPERTENSION
     Dosage: 10 MG, QD
     Route: 048
     Dates: start: 201412
  2. WARFARIN [Concomitant]
     Active Substance: WARFARIN

REACTIONS (13)
  - Malaise [Unknown]
  - Nasal congestion [Unknown]
  - Eye contusion [Unknown]
  - Respiratory failure [Recovered/Resolved]
  - Dizziness [Unknown]
  - Pneumonia [Unknown]
  - Loss of consciousness [Unknown]
  - No therapeutic response [Unknown]
  - Dyspnoea [Unknown]
  - Fall [Unknown]
  - Cardiac arrest [Recovered/Resolved]
  - Syncope [Unknown]
  - Blood pressure fluctuation [Unknown]

NARRATIVE: CASE EVENT DATE: 20150121
